FAERS Safety Report 24386586 (Version 1)
Quarter: 2024Q4

REPORT INFORMATION
  Report Type: Spontaneous
  Country: US (occurrence: US)
  Receive Date: 20241002
  Receipt Date: 20241002
  Transmission Date: 20250115
  Serious: Yes (Life-Threatening, Hospitalization, Other)
  Sender: KEDRION
  Company Number: US-KEDRION-009649

PATIENT
  Age: 43 Year
  Sex: Female

DRUGS (3)
  1. HUMAN IMMUNOGLOBULIN G [Suspect]
     Active Substance: HUMAN IMMUNOGLOBULIN G
     Indication: Immune thrombocytopenia
     Dosage: ON DAYS TWO AND FOUR OF ADMISSION
     Route: 042
  2. PLATELETS [Concomitant]
     Active Substance: HUMAN PLATELET, ALLOGENIC
     Indication: Immune thrombocytopenia
     Dosage: 1 UNIT
     Route: 065
  3. DEXAMETHASONE [Concomitant]
     Active Substance: DEXAMETHASONE
     Indication: Immune thrombocytopenia
     Dosage: FOR 4 DAYS
     Route: 065

REACTIONS (4)
  - Cardiac arrest [Recovered/Resolved]
  - Bradycardia [Recovered/Resolved]
  - Sinus arrest [Recovered/Resolved]
  - Syncope [Recovered/Resolved]
